FAERS Safety Report 15985956 (Version 1)
Quarter: 2019Q1

REPORT INFORMATION
  Report Type: Spontaneous
  Country: US (occurrence: US)
  Receive Date: 20190220
  Receipt Date: 20190220
  Transmission Date: 20190418
  Serious: Yes (Other)
  Sender: FDA-Public Use
  Company Number: None

PATIENT
  Age: 70 Year
  Sex: Female
  Weight: 60.75 kg

DRUGS (7)
  1. COREG [Concomitant]
     Active Substance: CARVEDILOL
  2. ZOCOR [Concomitant]
     Active Substance: SIMVASTATIN
  3. ASA [Concomitant]
     Active Substance: ASPIRIN
  4. CLONIDINE. [Concomitant]
     Active Substance: CLONIDINE
  5. ENALAPRIL MALEATE 2.5 MG [Suspect]
     Active Substance: ENALAPRIL MALEATE
     Indication: CORONARY ARTERIAL STENT INSERTION
     Dosage: ?          QUANTITY:180 TABLET(S);?
     Route: 048
     Dates: start: 20181220
  6. PLAVIX [Concomitant]
     Active Substance: CLOPIDOGREL BISULFATE
  7. ENALAPRIL MALEATE 5 MG [Suspect]
     Active Substance: ENALAPRIL MALEATE
     Indication: CORONARY ARTERIAL STENT INSERTION
     Route: 048
     Dates: start: 20181220

REACTIONS (4)
  - Product quality issue [None]
  - Recalled product administered [None]
  - Blood pressure increased [None]
  - Anxiety [None]

NARRATIVE: CASE EVENT DATE: 20190211
